FAERS Safety Report 7306301-1 (Version None)
Quarter: 2011Q1

REPORT INFORMATION
  Report Type: 
  Country: None (occurrence: None)
  Receive Date: 20110210
  Receipt Date: 20110128
  Transmission Date: 20110831
  Serious: Yes (Other)
  Sender: FDA-Public Use
  Company Number: 012158

PATIENT
  Sex: Female
  Weight: 77 kg

DRUGS (4)
  1. LACOSAMIDE [Suspect]
     Indication: EPILEPSY
     Dosage: (100 MG BID) ; (200 MG QD ORAL)
     Route: 048
     Dates: start: 20100326, end: 20100430
  2. LACOSAMIDE [Suspect]
     Indication: EPILEPSY
     Dosage: (100 MG BID) ; (200 MG QD ORAL)
     Route: 048
     Dates: start: 20100504, end: 20100504
  3. KEPPRA [Concomitant]
  4. LAMICTAL [Concomitant]

REACTIONS (3)
  - ELECTROENCEPHALOGRAM ABNORMAL [None]
  - DRUG INEFFECTIVE [None]
  - STATUS EPILEPTICUS [None]
